FAERS Safety Report 10535418 (Version 1)
Quarter: 2014Q4

REPORT INFORMATION
  Report Type: Spontaneous
  Country: US (occurrence: US)
  Receive Date: 20141022
  Receipt Date: 20141022
  Transmission Date: 20150529
  Serious: No
  Sender: FDA-Public Use
  Company Number: US-ASTRAZENECA-2013SE84191

PATIENT
  Age: 68 Year
  Sex: Male
  Weight: 96.2 kg

DRUGS (9)
  1. ZETIA [Concomitant]
     Active Substance: EZETIMIBE
     Indication: BLOOD CHOLESTEROL ABNORMAL
  2. MELOXICAM. [Concomitant]
     Active Substance: MELOXICAM
     Indication: SPINAL DISORDER
     Dates: start: 2003
  3. METFORMIN [Concomitant]
     Active Substance: METFORMIN HYDROCHLORIDE
     Indication: DIABETES MELLITUS
     Dates: start: 2010
  4. ZOCOR [Concomitant]
     Active Substance: SIMVASTATIN
  5. LIPITOR [Concomitant]
     Active Substance: ATORVASTATIN CALCIUM
     Dates: start: 2011
  6. MYCARDIS [Concomitant]
     Indication: BLOOD PRESSURE ABNORMAL
     Dates: start: 2003
  7. NIACIN. [Concomitant]
     Active Substance: NIACIN
     Dates: start: 2011
  8. NITRIC OXIDE VITAMIN REGIMIN [Concomitant]
     Dates: start: 2007
  9. CRESTOR [Suspect]
     Active Substance: ROSUVASTATIN CALCIUM
     Indication: BLOOD CHOLESTEROL INCREASED
     Route: 048
     Dates: start: 2011, end: 201309

REACTIONS (5)
  - Erectile dysfunction [Recovering/Resolving]
  - Pain in extremity [Recovering/Resolving]
  - Stress [Unknown]
  - Chest pain [Recovered/Resolved]
  - Amnesia [Recovering/Resolving]

NARRATIVE: CASE EVENT DATE: 2012
